FAERS Safety Report 9697972 (Version 3)
Quarter: 2015Q4

REPORT INFORMATION
  Report Type: Report from Study
  Country: US (occurrence: US)
  Receive Date: 20131120
  Receipt Date: 20151005
  Transmission Date: 20160305
  Serious: No
  Sender: FDA-Public Use
  Company Number: US-ALEXION-A201303470

PATIENT

DRUGS (1)
  1. SOLIRIS [Suspect]
     Active Substance: ECULIZUMAB
     Indication: HAEMOLYTIC URAEMIC SYNDROME
     Dosage: 1200 MG, Q2W
     Route: 042
     Dates: start: 20111031

REACTIONS (11)
  - Nasopharyngitis [Unknown]
  - Pain [Unknown]
  - Weight decreased [Unknown]
  - Pruritus [Unknown]
  - Fatigue [Unknown]
  - Erythema [Unknown]
  - Migraine [Unknown]
  - Rash [Recovering/Resolving]
  - Back pain [Unknown]
  - Pyrexia [Unknown]
  - Vomiting [Unknown]

NARRATIVE: CASE EVENT DATE: 20150925
